FAERS Safety Report 9084973 (Version 1)
Quarter: 2013Q1

REPORT INFORMATION
  Report Type: Spontaneous
  Country: EC (occurrence: EC)
  Receive Date: 20130201
  Receipt Date: 20130201
  Transmission Date: 20140127
  Serious: Yes (Other)
  Sender: FDA-Public Use
  Company Number: PHHY2013EC008558

PATIENT
  Age: 80 Year
  Sex: Female

DRUGS (2)
  1. TRILEPTAL [Suspect]
     Dosage: UNK
     Route: 048
     Dates: start: 20110505
  2. TRILEPTAL [Suspect]
     Dosage: UNK UKN, UNK
     Route: 048

REACTIONS (2)
  - Appendicitis [Recovering/Resolving]
  - Peritonitis [Recovering/Resolving]
